FAERS Safety Report 19495419 (Version 3)
Quarter: 2022Q1

REPORT INFORMATION
  Report Type: Report from Study
  Country: US (occurrence: US)
  Receive Date: 20210706
  Receipt Date: 20220218
  Transmission Date: 20220423
  Serious: No
  Sender: FDA-Public Use
  Company Number: US-NOVARTISTESTPH-NVSC2021US150579

PATIENT
  Sex: Female

DRUGS (1)
  1. ENTRESTO [Suspect]
     Active Substance: SACUBITRIL\VALSARTAN
     Indication: Product used for unknown indication
     Dosage: 24/26 MG (SACUBITRIL 24.3 MG, VALSARTAN 25.7 MG)
     Route: 065

REACTIONS (3)
  - Weight increased [Unknown]
  - Dehydration [Unknown]
  - Hypotension [Unknown]
